FAERS Safety Report 14553629 (Version 1)
Quarter: 2018Q1

REPORT INFORMATION
  Report Type: Spontaneous
  Country: US (occurrence: US)
  Receive Date: 20180220
  Receipt Date: 20180220
  Transmission Date: 20180509
  Serious: No
  Sender: FDA-Public Use
  Company Number: US-TEVA-2018-US-856728

PATIENT
  Sex: Female

DRUGS (3)
  1. DILTIAZEM. [Concomitant]
     Active Substance: DILTIAZEM
     Indication: CHEST PAIN
  2. DILTIAZEM. [Concomitant]
     Active Substance: DILTIAZEM
     Indication: THROMBOSIS PROPHYLAXIS
     Route: 065
     Dates: start: 20180129
  3. WARFARIN [Suspect]
     Active Substance: WARFARIN
     Indication: THROMBOSIS PROPHYLAXIS
     Dates: start: 20180122

REACTIONS (2)
  - Flatulence [Unknown]
  - Heart rate irregular [Unknown]
